FAERS Safety Report 16880982 (Version 1)
Quarter: 2019Q4

REPORT INFORMATION
  Report Type: Spontaneous
  Country: US (occurrence: US)
  Receive Date: 20191003
  Receipt Date: 20191003
  Transmission Date: 20200122
  Serious: No
  Sender: FDA-Public Use
  Company Number: US-PFIZER INC-2019426528

PATIENT
  Age: 49 Year
  Sex: Female

DRUGS (1)
  1. SUTENT [Suspect]
     Active Substance: SUNITINIB MALATE
     Indication: GASTROINTESTINAL NEOPLASM
     Dosage: 37.5 MG, CYCLIC (2 WEEKS ON; 1 WEEK OFF)
     Route: 048
     Dates: start: 201902

REACTIONS (2)
  - Cyst [Unknown]
  - Weight increased [Unknown]
